FAERS Safety Report 14091851 (Version 3)
Quarter: 2020Q3

REPORT INFORMATION
  Report Type: Report from Study
  Country: FI (occurrence: FI)
  Receive Date: 20171016
  Receipt Date: 20180926
  Transmission Date: 20201104
  Serious: Yes (Hospitalization)
  Sender: FDA-Public Use
  Company Number: FI-BAYER-2017-111611

PATIENT
  Age: 69 Year
  Sex: Female
  Weight: 71 kg

DRUGS (16)
  1. ADDITIONAL STUDY MEDICATION [Suspect]
     Active Substance: UNSPECIFIED INGREDIENT
     Indication: FOLLICLE CENTRE LYMPHOMA, FOLLICULAR GRADE I, II, III
  2. MIRTAZAPIN [Concomitant]
     Active Substance: MIRTAZAPINE
     Indication: DEPRESSION
     Dosage: 15 MG DAILY
     Route: 048
     Dates: start: 2005
  3. HISTEC [Concomitant]
     Active Substance: CETIRIZINE HYDROCHLORIDE
     Indication: PREMEDICATION
     Dosage: 10 MG, ONCE
     Route: 048
     Dates: start: 20170530
  4. COPANLISIB. [Suspect]
     Active Substance: COPANLISIB
     Indication: FOLLICLE CENTRE LYMPHOMA, FOLLICULAR GRADE I, II, III
     Dosage: CYCLE 1 DAY 8, 60 MG
     Route: 042
     Dates: start: 20170605, end: 20170605
  5. ADDITIONAL STUDY MEDICATION [Suspect]
     Active Substance: UNSPECIFIED INGREDIENT
     Indication: FOLLICLE CENTRE LYMPHOMA, FOLLICULAR GRADE I, II, III
  6. TRUXAL [Concomitant]
     Active Substance: CHLORPROTHIXENE
     Indication: DEPRESSION
     Dosage: 50 MG DAILY
     Route: 048
     Dates: start: 200503
  7. CIRCADIN [Concomitant]
     Active Substance: MELATONIN
     Indication: INSOMNIA
     Dosage: 2 MG DAILY
     Route: 048
     Dates: start: 2005
  8. PARATABS [Concomitant]
     Indication: PREMEDICATION
     Dosage: 1 G, ONCE
     Route: 048
     Dates: start: 20170530
  9. ZOFRAN [Concomitant]
     Active Substance: ONDANSETRON HYDROCHLORIDE
     Indication: PROPHYLAXIS OF NAUSEA AND VOMITING
     Dosage: 8 MG, ONCE
     Route: 048
     Dates: start: 20170530
  10. PRIMPERAN [Concomitant]
     Active Substance: METOCLOPRAMIDE HYDROCHLORIDE
     Indication: PROPHYLAXIS OF NAUSEA AND VOMITING
     Dosage: 100 MG X3, PRN
     Dates: start: 20170530
  11. SOMAC [Concomitant]
     Active Substance: PANTOPRAZOLE SODIUM
     Indication: ADVERSE EVENT
     Dosage: 40 MG, QD
     Dates: start: 20170608
  12. EMCONCOR [Concomitant]
     Active Substance: BISOPROLOL FUMARATE
     Indication: TACHYCARDIA
     Dosage: 2.5 MG PRN
     Route: 048
     Dates: start: 20170611
  13. CLEXANE [Concomitant]
     Active Substance: ENOXAPARIN SODIUM
     Indication: PULMONARY EMBOLISM
     Dosage: 40 MG, BID
     Route: 058
     Dates: start: 20170721
  14. COPANLISIB. [Suspect]
     Active Substance: COPANLISIB
     Indication: FOLLICLE CENTRE LYMPHOMA, FOLLICULAR GRADE I, II, III
     Dosage: CYCLE 1 DAY 1, 60 MG
     Route: 042
     Dates: start: 20170530, end: 20170530
  15. COTRIM [Concomitant]
     Active Substance: SULFAMETHOXAZOLE\TRIMETHOPRIM
     Indication: INFECTION PROPHYLAXIS
     Dosage: 80/100MG DAILYUNK
     Route: 048
     Dates: start: 20170530
  16. CLEXANE [Concomitant]
     Active Substance: ENOXAPARIN SODIUM
     Indication: PULMONARY EMBOLISM
     Dosage: 60 MG, BID
     Route: 058
     Dates: start: 20170713, end: 20170720

REACTIONS (4)
  - Lymphopenia [None]
  - Stevens-Johnson syndrome [Recovered/Resolved with Sequelae]
  - Pyrexia [Recovered/Resolved]
  - Hyperglycaemia [None]

NARRATIVE: CASE EVENT DATE: 20170605
